FAERS Safety Report 10780887 (Version 1)
Quarter: 2015Q1

REPORT INFORMATION
  Report Type: Spontaneous
  Country: US (occurrence: US)
  Receive Date: 20150210
  Receipt Date: 20150210
  Transmission Date: 20150721
  Serious: No
  Sender: FDA-Public Use
  Company Number: US-GLAXOSMITHKLINE-A1059774A

PATIENT

DRUGS (1)
  1. NICODERM CQ [Suspect]
     Active Substance: NICOTINE
     Indication: PRODUCT USED FOR UNKNOWN INDICATION
     Route: 062
     Dates: start: 20140202, end: 20140203

REACTIONS (8)
  - Hypersomnia [Unknown]
  - Hypersensitivity [Unknown]
  - Application site erythema [Unknown]
  - Pruritus [Unknown]
  - Chills [Unknown]
  - Application site pruritus [Unknown]
  - Rash [Unknown]
  - Rash generalised [Unknown]
